FAERS Safety Report 15856596 (Version 2)
Quarter: 2019Q3

REPORT INFORMATION
  Report Type: Spontaneous
  Country: US (occurrence: US)
  Receive Date: 20190123
  Receipt Date: 20190902
  Transmission Date: 20191004
  Serious: Yes (Hospitalization, Other)
  Sender: FDA-Public Use
  Company Number: US-SUN PHARMACEUTICAL INDUSTRIES LTD-2019R1-196786

PATIENT
  Age: 50 Year
  Sex: Female

DRUGS (2)
  1. METFORMIN [Suspect]
     Active Substance: METFORMIN HYDROCHLORIDE
     Indication: WEIGHT DECREASED
     Dosage: UNK
     Route: 065
  2. METFORMIN [Suspect]
     Active Substance: METFORMIN HYDROCHLORIDE
     Indication: MOOD ALTERED

REACTIONS (8)
  - Lactic acidosis [Unknown]
  - Hallucination, visual [Unknown]
  - Drug abuse [Unknown]
  - Drug level increased [Unknown]
  - Apparent death [Unknown]
  - Renal failure [Unknown]
  - Product use in unapproved indication [Unknown]
  - Disorientation [Unknown]
